FAERS Safety Report 24021736 (Version 5)
Quarter: 2024Q3

REPORT INFORMATION
  Report Type: Spontaneous
  Country: CA (occurrence: CA)
  Receive Date: 20240627
  Receipt Date: 20240710
  Transmission Date: 20241017
  Serious: No
  Sender: ROCHE
  Company Number: CA-ROCHE-3466201

PATIENT
  Sex: Female

DRUGS (3)
  1. VABYSMO [Suspect]
     Active Substance: FARICIMAB\FARICIMAB-SVOA
     Indication: Neovascular age-related macular degeneration
     Dosage: DATE OF DOSE: 06/SEP/2023, 04/OCT/2023, 02/NOV/2023. 01/DEC/2023, 15/JAN/2024, 19/FEB/2024 AND 08/AP
     Route: 065
     Dates: start: 20230808
  2. LUCENTIS [Concomitant]
     Active Substance: RANIBIZUMAB
     Dates: start: 20180320, end: 20230808
  3. EYLEA [Concomitant]
     Active Substance: AFLIBERCEPT
     Dates: start: 20140929, end: 20160329

REACTIONS (1)
  - Vitreous floaters [Not Recovered/Not Resolved]
